FAERS Safety Report 4579353-X (Version None)
Quarter: 2005Q1

REPORT INFORMATION
  Report Type: 
  Country: None (occurrence: None)
  Receive Date: 20050209
  Receipt Date: 20050128
  Transmission Date: 20050727
  Serious: Yes (Hospitalization)
  Sender: FDA-Public Use
  Company Number: 200510420BCC

PATIENT
  Age: 24 Year
  Sex: Female

DRUGS (1)
  1. ALEVE [Suspect]
     Indication: HEADACHE
     Dosage: 440-220 MG, ORAL
     Route: 048

REACTIONS (2)
  - GASTROOESOPHAGEAL REFLUX DISEASE [None]
  - ULCER [None]
